FAERS Safety Report 12373149 (Version 1)
Quarter: 2016Q2

REPORT INFORMATION
  Report Type: Report from Study
  Country: US (occurrence: US)
  Receive Date: 20160516
  Receipt Date: 20160516
  Transmission Date: 20160815
  Serious: Yes (Life-Threatening, Hospitalization)
  Sender: FDA-Public Use
  Company Number: US-MALLINCKRODT-T201502995

PATIENT
  Age: 51 Year
  Sex: Male

DRUGS (2)
  1. REPOSITORY CORTICOTROPIN INJECTION [Suspect]
     Active Substance: CORTICOTROPIN
     Dosage: 80 UNITS TWICE A WEEK
     Route: 058
     Dates: start: 201601
  2. REPOSITORY CORTICOTROPIN INJECTION [Suspect]
     Active Substance: CORTICOTROPIN
     Indication: RHEUMATOID ARTHRITIS
     Dosage: 80 UNITS TWICE WEEKLY
     Route: 058
     Dates: start: 20150428, end: 20150805

REACTIONS (3)
  - Abdominal pain upper [Not Recovered/Not Resolved]
  - Hepatic infection [Not Recovered/Not Resolved]
  - Pancreatitis [Not Recovered/Not Resolved]

NARRATIVE: CASE EVENT DATE: 201505
